FAERS Safety Report 6968284-3 (Version None)
Quarter: 2010Q3

REPORT INFORMATION
  Report Type: 
  Country: None (occurrence: None)
  Receive Date: 20100907
  Receipt Date: 20100901
  Transmission Date: 20110219
  Serious: Yes (Other)
  Sender: FDA-Public Use
  Company Number: GB-ROCHE-712983

PATIENT
  Sex: Male
  Weight: 71.1 kg

DRUGS (5)
  1. TOCILIZUMAB [Suspect]
     Indication: RHEUMATOID ARTHRITIS
     Dosage: DATE OF LAST DOSE PRIOR TO SAE: 03 JUNE 2010, TEMPORARILY INTERRUPTED.
     Route: 042
     Dates: start: 20090205
  2. PREDNISOLONE [Suspect]
     Indication: PRODUCT USED FOR UNKNOWN INDICATION
     Route: 065
     Dates: start: 20080627
  3. ACETAMINOPHEN AND CODEINE PHOSPHATE [Concomitant]
     Dosage: TDD REPORTED AS: 30/500 PRN
  4. CALCICHEW D3 FORTE [Concomitant]
  5. RISEDRONATE SODIUM [Concomitant]

REACTIONS (1)
  - CEREBROVASCULAR ACCIDENT [None]
